FAERS Safety Report 14393918 (Version 1)
Quarter: 2018Q1

REPORT INFORMATION
  Report Type: Report from Study
  Country: GB (occurrence: GB)
  Receive Date: 20180116
  Receipt Date: 20180116
  Transmission Date: 20180509
  Serious: Yes (Death)
  Sender: FDA-Public Use
  Company Number: GB-CELLTRION INC.-2018GB017232

PATIENT

DRUGS (3)
  1. REMSIMA [Suspect]
     Active Substance: INFLIXIMAB
     Indication: RHEUMATOID ARTHRITIS
     Dosage: UNK
     Route: 042
     Dates: start: 20161214, end: 20161214
  2. METHOTREXATE. [Concomitant]
     Active Substance: METHOTREXATE
     Indication: RHEUMATOID ARTHRITIS
  3. REMSIMA [Suspect]
     Active Substance: INFLIXIMAB
     Dosage: UNK
     Route: 042
     Dates: start: 20170403, end: 20170403

REACTIONS (1)
  - Death [Fatal]

NARRATIVE: CASE EVENT DATE: 20171027
